FAERS Safety Report 5163995-7 (Version None)
Quarter: 2006Q4

REPORT INFORMATION
  Report Type: 
  Country: None (occurrence: None)
  Receive Date: 20061204
  Receipt Date: 20061120
  Transmission Date: 20070319
  Serious: Yes (Other)
  Sender: FDA-Public Use
  Company Number: US-ELI_LILLY_AND_COMPANY-US200611005310

PATIENT
  Age: 4 Month
  Sex: Male
  Weight: 3.5 kg

DRUGS (6)
  1. XIGRIS [Suspect]
     Indication: SEPTIC SHOCK
     Dosage: 24 UG, OTHER
  2. ERYTHROMYCIN ETHYLSUCCINATE [Concomitant]
     Indication: VIRAL INFECTION
  3. METHYLPREDNISOLONE [Concomitant]
  4. NOREPINEPHRINE BITARTRATE [Concomitant]
     Dosage: 0.5 UNK, UNK
  5. DOBUTAMINE HCL [Concomitant]
     Dosage: 6 UNK, UNK
  6. DOPAMINE [Concomitant]
     Dosage: 10 UNK, UNK

REACTIONS (5)
  - BACTERAEMIA [None]
  - CATHETER SITE HAEMORRHAGE [None]
  - HAEMORRHAGE [None]
  - HAEMORRHAGE INTRACRANIAL [None]
  - HYPERTENSION [None]
